FAERS Safety Report 6554159-0 (Version None)
Quarter: 2010Q1

REPORT INFORMATION
  Report Type: 
  Country: None (occurrence: None)
  Receive Date: 20100125
  Receipt Date: 20100125
  Transmission Date: 20100710
  Serious: Yes (Hospitalization)
  Sender: FDA-Public Use
  Company Number: None

PATIENT
  Age: 31 Year
  Sex: Male
  Weight: 86.637 kg

DRUGS (3)
  1. TYLENOL (CAPLET) [Suspect]
     Indication: BACK PAIN
     Dosage: 1300 MG -2 CAPLETS- EVERY 8 HOURS PO
     Route: 048
     Dates: start: 20100116, end: 20100119
  2. TYLENOL (CAPLET) [Suspect]
     Indication: HEADACHE
     Dosage: 1300 MG -2 CAPLETS- EVERY 8 HOURS PO
     Route: 048
     Dates: start: 20100116, end: 20100119
  3. TYLENOL (CAPLET) [Suspect]
     Indication: MYALGIA
     Dosage: 1300 MG -2 CAPLETS- EVERY 8 HOURS PO
     Route: 048
     Dates: start: 20100116, end: 20100119

REACTIONS (4)
  - NAUSEA [None]
  - PANCREATITIS [None]
  - PRODUCT QUALITY ISSUE [None]
  - VOMITING [None]
